FAERS Safety Report 8410251-7 (Version None)
Quarter: 2012Q2

REPORT INFORMATION
  Report Type: 
  Country: None (occurrence: None)
  Receive Date: 20120605
  Receipt Date: 20120531
  Transmission Date: 20120825
  Serious: Yes (Other)
  Sender: FDA-Public Use
  Company Number: PHEH2012US011220

PATIENT
  Sex: Female
  Weight: 91.61 kg

DRUGS (1)
  1. GILENYA [Suspect]
     Indication: MULTIPLE SCLEROSIS
     Dosage: 0.5 MG, QD
     Route: 048
     Dates: start: 20120531, end: 20120531

REACTIONS (5)
  - FATIGUE [None]
  - PARAESTHESIA [None]
  - HEADACHE [None]
  - BLOOD PRESSURE DECREASED [None]
  - HEART RATE DECREASED [None]
